FAERS Safety Report 16559668 (Version 1)
Quarter: 2019Q3

REPORT INFORMATION
  Report Type: Spontaneous
  Country: US (occurrence: US)
  Receive Date: 20190711
  Receipt Date: 20190711
  Transmission Date: 20191004
  Serious: Yes (Other)
  Sender: FDA-Public Use
  Company Number: US-SA-2019SA185280

PATIENT
  Age: 66 Year
  Sex: Male
  Weight: 111.11 kg

DRUGS (9)
  1. PRALUENT [Suspect]
     Active Substance: ALIROCUMAB
     Indication: HYPERLIPIDAEMIA
     Dosage: 75 MG, QOW
     Route: 058
     Dates: start: 20190401
  2. GABAPENTIN. [Concomitant]
     Active Substance: GABAPENTIN
     Dosage: 100 MG, QD
  3. LASIX [Concomitant]
     Active Substance: FUROSEMIDE
  4. METFORMIN [METFORMIN HYDROCHLORIDE] [Concomitant]
     Active Substance: METFORMIN HYDROCHLORIDE
  5. ASPIRIN [ACETYLSALICYLIC ACID] [Concomitant]
     Active Substance: ASPIRIN
  6. AMARYL [Concomitant]
     Active Substance: GLIMEPIRIDE
  7. GABAPENTIN. [Concomitant]
     Active Substance: GABAPENTIN
     Dosage: 300 MG, TID
  8. COREG [Concomitant]
     Active Substance: CARVEDILOL
  9. LOSARTAN POTASSIUM. [Concomitant]
     Active Substance: LOSARTAN POTASSIUM

REACTIONS (5)
  - Blood glucose abnormal [Unknown]
  - Arthropathy [Unknown]
  - Weight increased [Unknown]
  - Neuropathy peripheral [Unknown]
  - Body mass index increased [Unknown]
